FAERS Safety Report 9250683 (Version 1)
Quarter: 2013Q1

REPORT INFORMATION
  Report Type: Spontaneous
  Country: US (occurrence: None)
  Receive Date: 20130305
  Receipt Date: 20130305
  Transmission Date: 20140127
  Serious: Yes (Other)
  Sender: FDA-Public Use
  Company Number: 163-21880-12071111 (0)

PATIENT
  Sex: Male

DRUGS (12)
  1. REVLIMID [Suspect]
     Indication: PLASMA CELL MYELOMA
     Dosage: 25MG, X 21 DAYS OFF 28 DAYS
     Route: 048
     Dates: start: 201001
  2. DEXAMETHASONE (DEXAMETHASONE) [Concomitant]
  3. ASPIRIN (UNKNOWN) [Concomitant]
  4. VITAMIN B (VITAMIN B) [Concomitant]
  5. VITAMIN D2 (ERGOCALCIFEROL) [Concomitant]
  6. GABAPENTIN (GABAPENTIN) [Concomitant]
  7. HYDROCODONE-ACETAMINOPHEN (VICODIN) [Concomitant]
  8. METFORMIN (METFORMIN) [Concomitant]
  9. OMEPRAZOLE (OMEPRAZOLE) [Concomitant]
  10. SIMVASTATIN (SIMVASTATIN) [Concomitant]
  11. IBUPROFEN (IBUPROFEN) [Concomitant]
  12. ZOLPIDEM (ZOLPIDEM) [Concomitant]

REACTIONS (1)
  - Interstitial lung disease [None]
